FAERS Safety Report 21229141 (Version 2)
Quarter: 2023Q4

REPORT INFORMATION
  Report Type: Report from Study
  Country: CA (occurrence: CA)
  Receive Date: 20220818
  Receipt Date: 20231015
  Transmission Date: 20240110
  Serious: Yes (Hospitalization)
  Sender: FDA-Public Use
  Company Number: CA-ABBVIE-22K-028-4354324-00

PATIENT
  Age: 69 Year
  Sex: Male

DRUGS (3)
  1. LUPRON DEPOT [Suspect]
     Active Substance: LEUPROLIDE ACETATE
     Indication: Prostate cancer
     Dosage: FORM STRENGTH: 7.5 MILLIGRAM
     Route: 030
     Dates: start: 20200301
  2. ZYTIGA [Concomitant]
     Active Substance: ABIRATERONE ACETATE
     Indication: Prostate cancer
     Dates: start: 202005
  3. PREDNISONE [Concomitant]
     Active Substance: PREDNISONE
     Indication: Prostate cancer
     Dates: start: 202005

REACTIONS (2)
  - General physical health deterioration [Unknown]
  - SARS-CoV-2 test positive [Unknown]

NARRATIVE: CASE EVENT DATE: 20220329
